FAERS Safety Report 20553546 (Version 1)
Quarter: 2022Q1

REPORT INFORMATION
  Report Type: Spontaneous
  Country: CN (occurrence: None)
  Receive Date: 20220304
  Receipt Date: 20220304
  Transmission Date: 20220423
  Serious: Yes (Other)
  Sender: FDA-Public Use
  Company Number: CN-ROCHE-3038309

PATIENT
  Age: 70 Year
  Sex: Female
  Weight: 70 kg

DRUGS (25)
  1. MABTHERA [Suspect]
     Active Substance: RITUXIMAB
     Indication: Diffuse large B-cell lymphoma
     Dosage: 4 CYCLES
     Route: 065
     Dates: start: 20160608, end: 20160811
  2. MABTHERA [Suspect]
     Active Substance: RITUXIMAB
     Dosage: 2 CYCLES
     Route: 065
     Dates: start: 20190622
  3. GAZYVA [Suspect]
     Active Substance: OBINUTUZUMAB
     Indication: Diffuse large B-cell lymphoma
     Route: 042
     Dates: start: 20220128
  4. CYCLOPHOSPHAMIDE [Concomitant]
     Active Substance: CYCLOPHOSPHAMIDE
     Indication: Diffuse large B-cell lymphoma
     Dosage: 4 CYCLES
     Dates: start: 20160608, end: 20160811
  5. CYCLOPHOSPHAMIDE [Concomitant]
     Active Substance: CYCLOPHOSPHAMIDE
     Dosage: 5 CYCLES
     Dates: start: 20160907, end: 20161218
  6. CYCLOPHOSPHAMIDE [Concomitant]
     Active Substance: CYCLOPHOSPHAMIDE
     Dosage: 4 CYCLES
     Dates: start: 20200709, end: 20201020
  7. DOXORUBICIN [Concomitant]
     Active Substance: DOXORUBICIN
     Indication: Diffuse large B-cell lymphoma
     Dosage: 4 CYCLES
     Dates: start: 20160608, end: 20160811
  8. DOXORUBICIN [Concomitant]
     Active Substance: DOXORUBICIN
     Dosage: 5 CYCLES
     Dates: start: 20160907, end: 20161218
  9. VINCRISTINE [Concomitant]
     Active Substance: VINCRISTINE
     Indication: Diffuse large B-cell lymphoma
     Dosage: 4 CYCLES
     Dates: start: 20160608, end: 20160811
  10. VINCRISTINE [Concomitant]
     Active Substance: VINCRISTINE
     Dosage: 5 CYCLES
     Dates: start: 20160907, end: 20161218
  11. PREDNISONE [Concomitant]
     Active Substance: PREDNISONE
     Indication: Diffuse large B-cell lymphoma
     Dosage: 4 CYCLES
     Dates: start: 20160608, end: 20160811
  12. PREDNISONE [Concomitant]
     Active Substance: PREDNISONE
     Dosage: 5 CYCLES
     Dates: start: 20160907, end: 20161218
  13. GEMCITABINE [Concomitant]
     Active Substance: GEMCITABINE
     Indication: Diffuse large B-cell lymphoma
     Dosage: 2 CYCLES
     Dates: start: 20171228, end: 20180203
  14. GEMCITABINE [Concomitant]
     Active Substance: GEMCITABINE
     Dosage: 5 CYCLES
     Dates: start: 20160907, end: 20161218
  15. GEMCITABINE [Concomitant]
     Active Substance: GEMCITABINE
     Dates: start: 20220129
  16. CISPLATIN [Concomitant]
     Active Substance: CISPLATIN
     Indication: Diffuse large B-cell lymphoma
     Dosage: 2 CYCLES
     Dates: start: 20171228, end: 20180203
  17. CISPLATIN [Concomitant]
     Active Substance: CISPLATIN
     Dosage: 5 CYCLES
     Dates: start: 20160907, end: 20161218
  18. DEXAMETHASONE [Concomitant]
     Active Substance: DEXAMETHASONE
     Indication: Diffuse large B-cell lymphoma
     Dosage: 2 CYCLES
     Dates: start: 20171228, end: 20180203
  19. DEXAMETHASONE [Concomitant]
     Active Substance: DEXAMETHASONE
     Dosage: 5 CYCLES
     Dates: start: 20160907, end: 20161218
  20. LENALIDOMIDE [Concomitant]
     Active Substance: LENALIDOMIDE
     Indication: Diffuse large B-cell lymphoma
     Dosage: 2 CYCLES
     Dates: start: 20190622, end: 20190910
  21. CARBOPLATIN [Concomitant]
     Active Substance: CARBOPLATIN
     Indication: Diffuse large B-cell lymphoma
     Dosage: 4 CYCLES
     Dates: start: 20200709, end: 20201020
  22. ETOPOSIDE [Concomitant]
     Active Substance: ETOPOSIDE
     Indication: Diffuse large B-cell lymphoma
     Dosage: 4 CYCLES
     Dates: start: 20200709, end: 20201020
  23. ZANUBRUTINIB [Concomitant]
     Active Substance: ZANUBRUTINIB
     Indication: Diffuse large B-cell lymphoma
     Dates: start: 202011
  24. ZANUBRUTINIB [Concomitant]
     Active Substance: ZANUBRUTINIB
     Dosage: ON 22 SEP 2021, 21 OCT 2021, 20 NOV 2021, 15 DEC 2021 FOR 4 CYCLES
     Dates: start: 20210922
  25. SINTILIMAB [Concomitant]
     Active Substance: SINTILIMAB
     Indication: Diffuse large B-cell lymphoma
     Dosage: ON 22 SEP 2021, 21 OCT 2021, 20 NOV 2021, 15 DEC 2021 FOR 4 CYCLES
     Dates: start: 20210922

REACTIONS (3)
  - Gastrointestinal haemorrhage [Unknown]
  - Haemophagocytic lymphohistiocytosis [Unknown]
  - Off label use [Unknown]
